FAERS Safety Report 21208632 (Version 1)
Quarter: 2022Q3

REPORT INFORMATION
  Report Type: Spontaneous
  Country: ES (occurrence: ES)
  Receive Date: 20220812
  Receipt Date: 20220812
  Transmission Date: 20221026
  Serious: Yes (Hospitalization)
  Sender: FDA-Public Use
  Company Number: ES-ASTELLAS-2022US027982

PATIENT
  Age: 59 Year
  Sex: Female

DRUGS (2)
  1. BENDAMUSTINE HYDROCHLORIDE [Suspect]
     Active Substance: BENDAMUSTINE HYDROCHLORIDE
     Indication: T-cell lymphoma
     Dosage: UNK UNK, CYCLIC
     Route: 042
  2. BRENTUXIMAB VEDOTIN [Suspect]
     Active Substance: BRENTUXIMAB VEDOTIN
     Indication: T-cell lymphoma
     Dosage: UNK UNK, CYCLIC?FORMULATION UNKNOWN
     Route: 065

REACTIONS (3)
  - Skin toxicity [Unknown]
  - Febrile neutropenia [Unknown]
  - Haemodynamic instability [Unknown]
